FAERS Safety Report 14666084 (Version 1)
Quarter: 2018Q1

REPORT INFORMATION
  Report Type: Spontaneous
  Country: US (occurrence: US)
  Receive Date: 20180321
  Receipt Date: 20180321
  Transmission Date: 20180509
  Serious: No
  Sender: FDA-Public Use
  Company Number: US-ELI_LILLY_AND_COMPANY-US201803006259

PATIENT
  Sex: Female

DRUGS (3)
  1. INVOKANA [Concomitant]
     Active Substance: CANAGLIFLOZIN
     Indication: GLUCOSE TOLERANCE IMPAIRED
     Dosage: 300 MG, UNKNOWN
     Route: 065
  2. TRULICITY [Suspect]
     Active Substance: DULAGLUTIDE
     Dosage: 0.75 MG, UNKNOWN
     Route: 058
  3. TRULICITY [Suspect]
     Active Substance: DULAGLUTIDE
     Indication: GLUCOSE TOLERANCE IMPAIRED
     Dosage: 0.75 MG, UNKNOWN
     Route: 058

REACTIONS (8)
  - Injection site pain [Unknown]
  - Injection site haemorrhage [Unknown]
  - Insomnia [Unknown]
  - Vomiting [Unknown]
  - Flushing [Unknown]
  - Stress [Unknown]
  - Blood glucose increased [Unknown]
  - Drug dose omission [Unknown]
